FAERS Safety Report 6334462-X (Version None)
Quarter: 2009Q3

REPORT INFORMATION
  Report Type: 
  Country: None (occurrence: None)
  Receive Date: 20090827
  Receipt Date: 20090812
  Transmission Date: 20100115
  Serious: Yes (Hospitalization)
  Sender: FDA-Public Use
  Company Number: 2009002434

PATIENT
  Age: 75 Year
  Sex: Male

DRUGS (10)
  1. TARCEVA [Suspect]
     Indication: PANCREATIC CARCINOMA
     Dosage: 100 MG, QD, ORAL
     Route: 048
     Dates: start: 20090605
  2. AVANDIA [Concomitant]
  3. AFRIN [Concomitant]
  4. CITALOPRAM HYDROBROMIDE [Concomitant]
  5. ZOFRAN [Concomitant]
  6. FOLIC ACID [Concomitant]
  7. PRILOSEC [Concomitant]
  8. MULTIVITAMIN [Concomitant]
  9. VITAMIN B12 [Concomitant]
  10. TYLENOL [Concomitant]

REACTIONS (1)
  - PARKINSON'S DISEASE [None]
